FAERS Safety Report 8591931-X (Version None)
Quarter: 2012Q3

REPORT INFORMATION
  Report Type: 
  Country: None (occurrence: None)
  Receive Date: 20120814
  Receipt Date: 20120809
  Transmission Date: 20120928
  Serious: Yes (Other)
  Sender: FDA-Public Use
  Company Number: US-PFIZER INC-2012194919

PATIENT
  Age: 35 Year
  Sex: Male
  Weight: 97.052 kg

DRUGS (2)
  1. CHANTIX [Suspect]
     Dosage: 0.5 MG, UNK
     Route: 048
     Dates: end: 20120809
  2. CHANTIX [Suspect]
     Indication: SMOKING CESSATION THERAPY
     Dosage: 0.5 MG, 1X/DAY
     Route: 048
     Dates: start: 20120805

REACTIONS (6)
  - SELF-INJURIOUS IDEATION [None]
  - AGGRESSION [None]
  - HOSTILITY [None]
  - FEAR [None]
  - ANGER [None]
  - AGITATION [None]
